FAERS Safety Report 5729234-0 (Version None)
Quarter: 2008Q2

REPORT INFORMATION
  Report Type: 
  Country: None (occurrence: None)
  Receive Date: 20080430
  Receipt Date: 20071228
  Transmission Date: 20081010
  Serious: No
  Sender: FDA-Public Use
  Company Number: 2007PV033885

PATIENT
  Age: 70 Year
  Sex: Female
  Weight: 81.6475 kg

DRUGS (5)
  1. SYMLIN [Suspect]
     Indication: TYPE 1 DIABETES MELLITUS
     Dosage: 30 MCG;TID;SC ; 30 MCG;TID;SC ; 18 MCG;TID;SC
     Route: 058
     Dates: start: 20071128, end: 20070101
  2. SYMLIN [Suspect]
     Indication: TYPE 1 DIABETES MELLITUS
     Dosage: 30 MCG;TID;SC ; 30 MCG;TID;SC ; 18 MCG;TID;SC
     Route: 058
     Dates: start: 20070101, end: 20071221
  3. SYMLIN [Suspect]
     Indication: TYPE 1 DIABETES MELLITUS
     Dosage: 30 MCG;TID;SC ; 30 MCG;TID;SC ; 18 MCG;TID;SC
     Route: 058
     Dates: start: 20071227
  4. NOVOLOG [Concomitant]
  5. INSULIN DETEMIR [Concomitant]

REACTIONS (1)
  - HOT FLUSH [None]
